FAERS Safety Report 14264396 (Version 1)
Quarter: 2017Q4

REPORT INFORMATION
  Report Type: Spontaneous
  Country: US (occurrence: US)
  Receive Date: 20171208
  Receipt Date: 20171208
  Transmission Date: 20180321
  Serious: Yes (Hospitalization)
  Sender: FDA-Public Use
  Company Number: US-IMPAX LABORATORIES, INC-2017-IPXL-03383

PATIENT
  Age: 70 Year
  Sex: Female

DRUGS (14)
  1. LORAZEPAM. [Concomitant]
     Active Substance: LORAZEPAM
     Indication: SCHIZOAFFECTIVE DISORDER
     Dosage: 1 MG, 2 /DAY
     Route: 048
     Dates: start: 201611
  2. AMLODIPINE BESYLATE. [Concomitant]
     Active Substance: AMLODIPINE BESYLATE
     Indication: PRODUCT USED FOR UNKNOWN INDICATION
     Dosage: 5 MG, DAILY
     Route: 048
     Dates: start: 201711
  3. LEVOTHYROXINE SODIUM. [Concomitant]
     Active Substance: LEVOTHYROXINE SODIUM
     Indication: PRODUCT USED FOR UNKNOWN INDICATION
     Dosage: 25 ?G, DAILY
     Route: 048
     Dates: start: 201611
  4. LITHIUM. [Suspect]
     Active Substance: LITHIUM
     Dosage: 300 MG, 3 /DAY
     Route: 065
     Dates: start: 20161111, end: 201611
  5. RISPERIDONE. [Concomitant]
     Active Substance: RISPERIDONE
     Dosage: 3 MG, 2 /DAY
     Route: 048
     Dates: start: 201611
  6. LITHIUM. [Suspect]
     Active Substance: LITHIUM
     Indication: SCHIZOAFFECTIVE DISORDER
     Dosage: 300 MG, 2 /DAY
     Route: 065
     Dates: start: 201611, end: 201611
  7. ASPIRIN 81 [Concomitant]
     Active Substance: ASPIRIN
     Indication: PRODUCT USED FOR UNKNOWN INDICATION
     Dosage: 81 MG, DAILY
     Route: 048
     Dates: start: 201611
  8. VALPROIC ACID. [Suspect]
     Active Substance: VALPROIC ACID
     Indication: SCHIZOAFFECTIVE DISORDER
     Dosage: 250 MG, BEDTIME
     Route: 048
     Dates: start: 201611
  9. RISPERIDONE. [Concomitant]
     Active Substance: RISPERIDONE
     Indication: SCHIZOAFFECTIVE DISORDER
     Dosage: 3.5 MG, BID
     Route: 048
     Dates: start: 201611
  10. DIVALPROEX SODIUM ER [Suspect]
     Active Substance: DIVALPROEX SODIUM
     Indication: SCHIZOAFFECTIVE DISORDER
     Dosage: 500 MG, BID
     Route: 048
     Dates: start: 201611
  11. DIVALPROEX SODIUM ER [Suspect]
     Active Substance: DIVALPROEX SODIUM
     Indication: PRODUCT USE IN UNAPPROVED INDICATION
  12. LITHIUM. [Suspect]
     Active Substance: LITHIUM
     Dosage: 300 MG TWICE DAILY AND 450MG AT BED- TIME
     Route: 065
     Dates: start: 20161115, end: 20161122
  13. GABAPENTIN. [Concomitant]
     Active Substance: GABAPENTIN
     Indication: PRODUCT USED FOR UNKNOWN INDICATION
     Dosage: 300 MG, 3 /DAY
     Route: 048
     Dates: start: 201611
  14. AMANTADINE HCL [Concomitant]
     Active Substance: AMANTADINE HYDROCHLORIDE
     Indication: PRODUCT USED FOR UNKNOWN INDICATION
     Dosage: 100 MG, 2 /DAY
     Route: 048
     Dates: start: 201611

REACTIONS (5)
  - Toxicity to various agents [Recovered/Resolved]
  - Aphasia [Recovered/Resolved]
  - Transient aphasia [Recovered/Resolved]
  - Drug ineffective for unapproved indication [Unknown]
  - Blood sodium increased [Unknown]

NARRATIVE: CASE EVENT DATE: 201611
